FAERS Safety Report 12991921 (Version 10)
Quarter: 2020Q1

REPORT INFORMATION
  Report Type: Spontaneous
  Country: US (occurrence: US)
  Receive Date: 20161201
  Receipt Date: 20200124
  Transmission Date: 20200409
  Serious: No
  Sender: FDA-Public Use
  Company Number: US-PFIZER INC-2016558235

PATIENT
  Age: 72 Year
  Sex: Female
  Weight: 52 kg

DRUGS (20)
  1. LOSARTAN. [Concomitant]
     Active Substance: LOSARTAN
     Dosage: 50 MG, DAILY (1 DAILY)
     Dates: start: 2016
  2. FISH OIL [Concomitant]
     Active Substance: FISH OIL
     Indication: CARDIAC DISORDER
     Dosage: UNK, 1X/DAY
  3. LYRICA [Suspect]
     Active Substance: PREGABALIN
     Indication: POLYNEUROPATHY
     Dosage: 150 MG, 2X/DAY
     Route: 048
     Dates: start: 2016, end: 2016
  4. LYRICA [Suspect]
     Active Substance: PREGABALIN
     Indication: MONONEURITIS
     Dosage: 50 MG, 3X/DAY
     Dates: start: 20161123, end: 2016
  5. MEDROXYPROGESTERONE [Concomitant]
     Active Substance: MEDROXYPROGESTERONE
     Dosage: 1 DF, DAILY (2.5)
  6. GABAPENTIN. [Concomitant]
     Active Substance: GABAPENTIN
     Dosage: 300 MG, UNK
  7. MULTIVITAMIN (16) [Suspect]
     Active Substance: VITAMINS
     Dosage: UNK UNK, 1X/DAY
  8. CALCIUM [Concomitant]
     Active Substance: CALCIUM
     Dosage: 600 MG, DAILY
     Dates: start: 1970
  9. MEMANTINE. [Concomitant]
     Active Substance: MEMANTINE
     Dosage: 10 MG, DAILY
     Dates: start: 201605
  10. ESTRADIOL. [Concomitant]
     Active Substance: ESTRADIOL
     Dosage: 1 MG, DAILY
  11. LYRICA [Suspect]
     Active Substance: PREGABALIN
     Dosage: 75 MG, 2X/DAY
     Dates: start: 20161222
  12. FISH OIL [Concomitant]
     Active Substance: FISH OIL
     Dosage: 1200 MG, UNK
     Dates: start: 2003
  13. NAMENDA [Concomitant]
     Active Substance: MEMANTINE HYDROCHLORIDE
     Indication: MEMORY IMPAIRMENT
     Dosage: 28 MG, UNK
     Dates: start: 2015
  14. LYRICA [Suspect]
     Active Substance: PREGABALIN
     Indication: NEUROPATHY PERIPHERAL
     Dosage: 50 MG, 2X/DAY
     Route: 048
     Dates: start: 20161027, end: 2016
  15. LYRICA [Suspect]
     Active Substance: PREGABALIN
     Dosage: 300 MG, DAILY (TAKE 1 (ONE) CAPSULE Q ( EVERY) AM AND 2( EVERY) Q PM)
     Route: 048
  16. NAMENDA [Concomitant]
     Active Substance: MEMANTINE HYDROCHLORIDE
     Dosage: 10 MG, DAILY
     Dates: start: 201605
  17. NAMENDA [Concomitant]
     Active Substance: MEMANTINE HYDROCHLORIDE
     Dosage: 1 DF, DAILY (28)
  18. CALCIUM [Concomitant]
     Active Substance: CALCIUM
     Indication: BONE DISORDER
     Dosage: UNK, 1X/DAY
  19. MEMANTINE. [Concomitant]
     Active Substance: MEMANTINE
     Dosage: UNK UNK, 2X/DAY [10]
  20. LOSARTAN. [Concomitant]
     Active Substance: LOSARTAN
     Indication: BLOOD PRESSURE ABNORMAL
     Dosage: 50 MG, DAILY
     Dates: start: 2015

REACTIONS (1)
  - Therapeutic product effect incomplete [Unknown]

NARRATIVE: CASE EVENT DATE: 20161027
